FAERS Safety Report 9435539 (Version 2)
Quarter: 2013Q3

REPORT INFORMATION
  Report Type: Spontaneous
  Country: US (occurrence: US)
  Receive Date: 20130730
  Receipt Date: 20130731
  Transmission Date: 20140515
  Serious: Yes (Disabling, Other)
  Sender: FDA-Public Use
  Company Number: 1307-940

PATIENT
  Age: 77 Year
  Sex: Female

DRUGS (1)
  1. EYLEA (AFLIBERCEPT)(INJECTION)(AFLIBERCEPT) [Suspect]
     Indication: AGE-RELATED MACULAR DEGENERATION
     Dosage: INTRAVITREAL.

REACTIONS (2)
  - Endophthalmitis [None]
  - Visual acuity reduced [None]
